FAERS Safety Report 9265906 (Version 3)
Quarter: 2013Q2

REPORT INFORMATION
  Report Type: Report from Study
  Country: US (occurrence: US)
  Receive Date: 20130501
  Receipt Date: 20130520
  Transmission Date: 20140414
  Serious: No
  Sender: FDA-Public Use
  Company Number: PHEH2013US008298

PATIENT
  Sex: Male

DRUGS (3)
  1. IMATINIB [Suspect]
     Dosage: UNK UKN, UNK
  2. NILOTINIB [Suspect]
     Dosage: UNK UKN, UNK
  3. DASATINIB [Suspect]

REACTIONS (1)
  - Therapeutic response decreased [Unknown]
